FAERS Safety Report 21033940 (Version 3)
Quarter: 2022Q3

REPORT INFORMATION
  Report Type: Spontaneous
  Country: US (occurrence: US)
  Receive Date: 20220701
  Receipt Date: 20220725
  Transmission Date: 20221027
  Serious: Yes (Hospitalization, Other)
  Sender: FDA-Public Use
  Company Number: US-PFIZER INC-PV202200009340

PATIENT
  Age: 41 Year
  Sex: Female
  Weight: 90.5 kg

DRUGS (2)
  1. PAXLOVID [Interacting]
     Active Substance: NIRMATRELVIR\RITONAVIR
     Indication: COVID-19 treatment
     Dosage: 300 MG NIRMATRELVIR, 100 MG RITONAVIR BID
     Route: 048
  2. ENVARSUS XR [Interacting]
     Active Substance: TACROLIMUS
     Indication: Renal transplant
     Dosage: 4 MG, DAILY
     Route: 048
     Dates: start: 202008

REACTIONS (4)
  - Drug interaction [Recovered/Resolved]
  - Immunosuppressant drug level increased [Recovered/Resolved]
  - Acute kidney injury [Recovered/Resolved]
  - Hyperkalaemia [Recovered/Resolved]
